FAERS Safety Report 13930763 (Version 2)
Quarter: 2020Q2

REPORT INFORMATION
  Report Type: Spontaneous
  Country: US (occurrence: US)
  Receive Date: 20170901
  Receipt Date: 20200428
  Transmission Date: 20200713
  Serious: Yes (Hospitalization)
  Sender: FDA-Public Use
  Company Number: US-BRISTOL-MYERS SQUIBB COMPANY-BMS-2017-077586

PATIENT
  Age: 53 Year
  Sex: Male

DRUGS (1)
  1. ELIQUIS [Suspect]
     Active Substance: APIXABAN
     Indication: CARDIAC VENTRICULAR THROMBOSIS
     Dosage: 5 MG, UNK
     Route: 065

REACTIONS (2)
  - Haematuria [Unknown]
  - Intentional product use issue [Unknown]
